FAERS Safety Report 21381903 (Version 6)
Quarter: 2023Q1

REPORT INFORMATION
  Report Type: Report from Study
  Country: CA (occurrence: CA)
  Receive Date: 20220927
  Receipt Date: 20230327
  Transmission Date: 20230418
  Serious: Yes (Hospitalization, Other)
  Sender: FDA-Public Use
  Company Number: CA-HLS-202201759

PATIENT
  Age: 60 Year
  Sex: Female
  Weight: 83 kg

DRUGS (6)
  1. CLOZARIL [Suspect]
     Active Substance: CLOZAPINE
     Indication: Schizophrenia
     Dosage: 50 MG IN THE MORNING  +275 MG AT BEDTIME
     Route: 048
     Dates: start: 2008
  2. CLOZARIL [Suspect]
     Active Substance: CLOZAPINE
     Indication: Schizophrenia
     Dosage: UNKNOWN
     Route: 048
     Dates: start: 20040531
  3. FILGRASTIM [Concomitant]
     Active Substance: FILGRASTIM
     Indication: Breast cancer
     Route: 065
     Dates: start: 20220920
  4. PEMBROLIZUMAB [Concomitant]
     Active Substance: PEMBROLIZUMAB
     Indication: Breast cancer
     Route: 065
     Dates: start: 20220920
  5. PACLITAXEL [Concomitant]
     Active Substance: PACLITAXEL
     Indication: Breast cancer
     Route: 065
     Dates: start: 20220920
  6. CARBOPLATIN [Concomitant]
     Active Substance: CARBOPLATIN
     Indication: Breast cancer
     Route: 065
     Dates: start: 20220920

REACTIONS (4)
  - Neutropenia [Recovered/Resolved]
  - COVID-19 [Unknown]
  - Invasive ductal breast carcinoma [Unknown]
  - Leukopenia [Unknown]

NARRATIVE: CASE EVENT DATE: 20221101
